FAERS Safety Report 10236482 (Version 1)
Quarter: 2014Q2

REPORT INFORMATION
  Report Type: Report from Study
  Country: JP (occurrence: JP)
  Receive Date: 20140613
  Receipt Date: 20140613
  Transmission Date: 20141212
  Serious: Yes (Hospitalization)
  Sender: FDA-Public Use
  Company Number: JP-BRISTOL-MYERS SQUIBB COMPANY-21010632

PATIENT
  Age: 63 Year
  Sex: Male

DRUGS (6)
  1. ABILIFY DISCMELT TABS [Suspect]
     Indication: BIPOLAR DISORDER
     Dosage: 10JUN-01AUG13 12MG?INT ON:01AUG2013?RES ON:13AUG2013-3MG.
     Route: 048
     Dates: start: 20130610
  2. AMLODIPINE [Concomitant]
  3. LIMAS [Concomitant]
     Dosage: TABLET
  4. NITRAZEPAM [Concomitant]
     Dosage: TABLET
  5. GASMOTIN [Concomitant]
  6. LAC-B [Concomitant]

REACTIONS (2)
  - Depressive symptom [Recovered/Resolved]
  - Stupor [Unknown]
